FAERS Safety Report 5212829-0 (Version None)
Quarter: 2007Q1

REPORT INFORMATION
  Report Type: 
  Country: None (occurrence: None)
  Receive Date: 20070119
  Receipt Date: 20070109
  Transmission Date: 20070707
  Serious: Yes (Other)
  Sender: FDA-Public Use
  Company Number: PHNU2006DE03115

PATIENT
  Age: 60 Year
  Sex: Female

DRUGS (5)
  1. FLURAZEPAM [Concomitant]
     Dosage: 30 MG/DAY
  2. LEPONEX [Suspect]
     Indication: SCHIZOPHRENIA
     Dosage: 400 MG/DAY
     Route: 048
     Dates: start: 20060711, end: 20060919
  3. ESCITALOPRAM OXALATE [Concomitant]
     Indication: DEPRESSION
     Dosage: 5 MG/DAY
     Dates: start: 20060824, end: 20060830
  4. LORAZEPAM [Concomitant]
     Indication: DEPRESSION
     Dosage: 1.5 MG/DAY
     Dates: start: 20060703, end: 20061130
  5. PANTOPRAZOLE SODIUM [Concomitant]
     Indication: GASTRIC DISORDER
     Dosage: 40 MG/DAY
     Dates: start: 20060816, end: 20060906

REACTIONS (3)
  - COLITIS [None]
  - COLONOSCOPY ABNORMAL [None]
  - DIARRHOEA [None]
